FAERS Safety Report 5659633-7 (Version None)
Quarter: 2008Q1

REPORT INFORMATION
  Report Type: 
  Country: None (occurrence: None)
  Receive Date: 20080310
  Receipt Date: 20080310
  Transmission Date: 20080703
  Serious: No
  Sender: FDA-Public Use
  Company Number: None

PATIENT
  Sex: Female

DRUGS (5)
  1. WELLBUTRIN XL [Suspect]
     Indication: ANXIETY
     Dosage: 450 MG ONCE DAILY PO
     Route: 048
     Dates: start: 20040907, end: 20080307
  2. WELLBUTRIN XL [Suspect]
     Indication: DEPRESSION
     Dosage: 450 MG ONCE DAILY PO
     Route: 048
     Dates: start: 20040907, end: 20080307
  3. PROZAC [Concomitant]
  4. ZOLOFT [Concomitant]
  5. LITHIUM CARBONATE [Concomitant]

REACTIONS (2)
  - DRUG EFFECT DECREASED [None]
  - THERAPEUTIC RESPONSE UNEXPECTED WITH DRUG SUBSTITUTION [None]
